FAERS Safety Report 15807325 (Version 1)
Quarter: 2019Q1

REPORT INFORMATION
  Report Type: Spontaneous
  Country: GB (occurrence: GB)
  Receive Date: 20190110
  Receipt Date: 20190110
  Transmission Date: 20190417
  Serious: Yes (Other)
  Sender: FDA-Public Use
  Company Number: GB-MYLANLABS-2019M1001637

PATIENT
  Age: 50 Year
  Sex: Female
  Weight: 68 kg

DRUGS (4)
  1. CARBAMAZEPINE. [Suspect]
     Active Substance: CARBAMAZEPINE
     Indication: PRODUCT USED FOR UNKNOWN INDICATION
     Dosage: UNK
     Dates: start: 20180620
  2. ZELLETA [Concomitant]
     Dosage: 1 DOSAGE FORM, QD
     Dates: start: 20170714
  3. OLSALAZINE SODIUM [Concomitant]
     Active Substance: OLSALAZINE SODIUM
     Dosage: 6 DOSAGE FORM, QD
     Dates: start: 20170714
  4. MESALAZINE [Concomitant]
     Active Substance: MESALAMINE
     Dosage: UNK UNK, BID
     Dates: start: 20170714

REACTIONS (3)
  - Rash maculo-papular [Recovering/Resolving]
  - Drug eruption [Recovering/Resolving]
  - Erythema [Recovering/Resolving]

NARRATIVE: CASE EVENT DATE: 20180620
